FAERS Safety Report 8336731-0 (Version None)
Quarter: 2012Q2

REPORT INFORMATION
  Report Type: 
  Country: None (occurrence: None)
  Receive Date: 20120504
  Receipt Date: 20100628
  Transmission Date: 20120825
  Serious: No
  Sender: FDA-Public Use
  Company Number: US-TEVA-2010003230

PATIENT
  Sex: Male
  Weight: 71.732 kg

DRUGS (3)
  1. THYROID TAB [Concomitant]
     Indication: THYROID DISORDER
     Route: 048
     Dates: start: 19900101
  2. NUVIGIL [Suspect]
     Indication: FATIGUE
     Dosage: 125 MILLIGRAM;
     Route: 048
     Dates: start: 20091201, end: 20091201
  3. ALPRAZOLAM [Concomitant]
     Indication: AGITATION
     Route: 048
     Dates: start: 20080101

REACTIONS (1)
  - UNEVALUABLE EVENT [None]
